FAERS Safety Report 24908075 (Version 1)
Quarter: 2025Q1

REPORT INFORMATION
  Report Type: Spontaneous
  Country: ES (occurrence: ES)
  Receive Date: 20250131
  Receipt Date: 20250131
  Transmission Date: 20250409
  Serious: Yes (Other)
  Sender: ABBVIE
  Company Number: None

PATIENT
  Age: 13 Year
  Sex: Male
  Weight: 64 kg

DRUGS (2)
  1. DALBAVANCIN HYDROCHLORIDE [Suspect]
     Active Substance: DALBAVANCIN HYDROCHLORIDE
     Indication: Osteomyelitis
     Dosage: FORM STRENGTH: 500 MG, 1 VIAL?FIRST AND SECOND DOSE
     Route: 042
     Dates: start: 20241219
  2. DALBAVANCIN HYDROCHLORIDE [Suspect]
     Active Substance: DALBAVANCIN HYDROCHLORIDE
     Indication: Osteomyelitis
     Dosage: FORM STRENGTH: 500 MG, 1 VIAL?THIRD DOSE
     Route: 042
     Dates: end: 20241226

REACTIONS (2)
  - Leukopenia [Recovered/Resolved]
  - Neutropenia [Recovered/Resolved]

NARRATIVE: CASE EVENT DATE: 20241226
